FAERS Safety Report 23294108 (Version 1)
Quarter: 2023Q4

REPORT INFORMATION
  Report Type: Spontaneous
  Country: IT (occurrence: IT)
  Receive Date: 20231213
  Receipt Date: 20231213
  Transmission Date: 20240110
  Serious: Yes (Other)
  Sender: FDA-Public Use
  Company Number: IT-SA-SAC20231126000021

PATIENT
  Age: 64 Year
  Sex: Male

DRUGS (1)
  1. LEVOFLOXACIN [Suspect]
     Active Substance: LEVOFLOXACIN
     Indication: Cellulitis
     Dosage: 750 MILLIGRAM, Q8H  (TID)
     Route: 048
     Dates: start: 20230818, end: 20230826

REACTIONS (5)
  - Lymphocytosis [Recovered/Resolved]
  - Neutropenia [Recovered/Resolved]
  - Intentional product misuse [Unknown]
  - Gamma-glutamyltransferase increased [Recovered/Resolved]
  - Medication error [Unknown]

NARRATIVE: CASE EVENT DATE: 20230923
